FAERS Safety Report 25643976 (Version 1)
Quarter: 2025Q3

REPORT INFORMATION
  Report Type: Spontaneous
  Country: CN (occurrence: CN)
  Receive Date: 20250805
  Receipt Date: 20250805
  Transmission Date: 20251021
  Serious: Yes (Hospitalization, Other)
  Sender: RANBAXY
  Company Number: CN-SUN PHARMACEUTICAL INDUSTRIES LTD-2025R1-516009

PATIENT
  Age: 66 Year
  Sex: Female

DRUGS (1)
  1. PREDNISONE [Suspect]
     Active Substance: PREDNISONE
     Indication: Rheumatoid arthritis
     Dosage: 2.5 MILLIGRAM, OD
     Route: 065

REACTIONS (5)
  - Intervertebral disc protrusion [Recovering/Resolving]
  - Diabetic foot [Recovering/Resolving]
  - Steroid diabetes [Recovering/Resolving]
  - Glucocorticoid deficiency [Recovering/Resolving]
  - Diabetic neuropathy [Recovering/Resolving]
